FAERS Safety Report 7097358-4 (Version None)
Quarter: 2010Q4

REPORT INFORMATION
  Report Type: 
  Country: None (occurrence: None)
  Receive Date: 20101111
  Receipt Date: 20101109
  Transmission Date: 20110411
  Serious: Yes (Life-Threatening, Hospitalization)
  Sender: FDA-Public Use
  Company Number: SE-PFIZER INC-2010143375

PATIENT
  Age: 68 Year
  Sex: Male

DRUGS (5)
  1. ZYVOX [Suspect]
     Indication: MEDIASTINITIS
     Dosage: 1.2 G, 1X/DAY
     Route: 048
     Dates: start: 20100601, end: 20100614
  2. BISOPROLOL [Concomitant]
     Dosage: UNK
  3. FELODIPINE [Concomitant]
     Dosage: UNK
  4. SIMVASTATIN [Concomitant]
     Dosage: UNK
  5. TROMBYL [Concomitant]
     Dosage: 75 MG, UNK

REACTIONS (1)
  - VENTRICULAR FIBRILLATION [None]
